FAERS Safety Report 5714496-6 (Version None)
Quarter: 2008Q2

REPORT INFORMATION
  Report Type: 
  Country: None (occurrence: None)
  Receive Date: 20080423
  Receipt Date: 20080415
  Transmission Date: 20081010
  Serious: Yes (Disabling)
  Sender: FDA-Public Use
  Company Number: PHHY2008GB05752

PATIENT
  Age: 62 Year
  Sex: Female

DRUGS (4)
  1. AMOXICILLIN [Concomitant]
     Indication: ORAL INFECTION
     Dosage: 500 MG FOR TWO WEEKS
     Route: 048
     Dates: start: 20080124
  2. METRONIDAZOLE HCL [Concomitant]
     Indication: ORAL INFECTION
     Dosage: 400 MG FOR TWO WEEKS
     Route: 048
     Dates: start: 20080124
  3. THALIDOMIDE [Concomitant]
     Indication: MULTIPLE MYELOMA
     Dosage: 100 MG
     Route: 048
     Dates: start: 20060901
  4. ZOLEDRONIC ACID [Suspect]
     Indication: MULTIPLE MYELOMA
     Dosage: 4 MG
     Route: 042
     Dates: start: 20060701, end: 20080301

REACTIONS (1)
  - OSTEONECROSIS [None]
